FAERS Safety Report 15322980 (Version 1)
Quarter: 2018Q3

REPORT INFORMATION
  Report Type: Spontaneous
  Country: IT (occurrence: IT)
  Receive Date: 20180827
  Receipt Date: 20180827
  Transmission Date: 20181010
  Serious: Yes (Other)
  Sender: FDA-Public Use
  Company Number: PHHY2018IT082956

PATIENT
  Age: 75 Year
  Sex: Male

DRUGS (1)
  1. LORAZEPAM. [Suspect]
     Active Substance: LORAZEPAM
     Indication: PRODUCT USED FOR UNKNOWN INDICATION
     Dosage: 3 DF, UNK (TOTAL)
     Route: 048
     Dates: start: 20180605, end: 20180605

REACTIONS (2)
  - Accidental exposure to product [Unknown]
  - Sopor [Unknown]

NARRATIVE: CASE EVENT DATE: 20180606
